FAERS Safety Report 11044764 (Version 2)
Quarter: 2015Q2

REPORT INFORMATION
  Report Type: Spontaneous
  Country: US (occurrence: None)
  Receive Date: 20150415
  Receipt Date: 20150428
  Transmission Date: 20150821
  Serious: Yes (Other)
  Sender: FDA-Public Use
  Company Number: CC15-0538

PATIENT
  Age: 70 Year
  Sex: Male

DRUGS (1)
  1. KETOCONAZOLE. [Suspect]
     Active Substance: KETOCONAZOLE
     Indication: SEBORRHOEIC DERMATITIS
     Dates: start: 201409, end: 201412

REACTIONS (6)
  - Oral disorder [None]
  - Accidental exposure to product [None]
  - Retinal haemorrhage [None]
  - Blindness unilateral [None]
  - Alopecia [None]
  - Oral pustule [None]
